FAERS Safety Report 14882912 (Version 2)
Quarter: 2018Q2

REPORT INFORMATION
  Report Type: Spontaneous
  Country: US (occurrence: US)
  Receive Date: 20180511
  Receipt Date: 20180531
  Transmission Date: 20180711
  Serious: Yes (Other)
  Sender: FDA-Public Use
  Company Number: US-009507513-1805USA001369

PATIENT
  Sex: Female
  Weight: 133.79 kg

DRUGS (3)
  1. METFORMIN [Concomitant]
     Active Substance: METFORMIN HYDROCHLORIDE
     Dosage: UNK
     Dates: start: 2008
  2. OMEGA-3 MARINE TRIGLYCERIDES [Concomitant]
     Active Substance: FISH OIL
     Dosage: UNK
     Dates: start: 2008
  3. NUVARING [Suspect]
     Active Substance: ETHINYL ESTRADIOL\ETONOGESTREL
     Indication: MENSTRUATION IRREGULAR
     Dosage: 3 WEEKS IN, 1 WEEK OUT
     Route: 067
     Dates: start: 2008, end: 2016

REACTIONS (8)
  - Haemorrhage urinary tract [Unknown]
  - Frequent bowel movements [Not Recovered/Not Resolved]
  - Pain [Unknown]
  - Product use in unapproved indication [Unknown]
  - Device dislocation [Recovered/Resolved]
  - Medical device site discomfort [Unknown]
  - Urinary tract infection [Unknown]
  - Menorrhagia [Unknown]

NARRATIVE: CASE EVENT DATE: 2008
